FAERS Safety Report 10449048 (Version 5)
Quarter: 2025Q3

REPORT INFORMATION
  Report Type: Spontaneous
  Country: EU (occurrence: EU)
  Receive Date: 20140912
  Receipt Date: 20250930
  Transmission Date: 20251020
  Serious: Yes (Death, Other)
  Sender: AUROBINDO
  Company Number: EU-AUROBINDO-AUR-APL-2014-09752

PATIENT
  Age: 51 Year
  Sex: Male

DRUGS (10)
  1. TRAMADOL [Suspect]
     Active Substance: TRAMADOL
     Indication: Suicide attempt
     Route: 065
  2. CODEINE [Suspect]
     Active Substance: CODEINE
     Indication: Suicide attempt
     Route: 065
  3. LYRICA [Suspect]
     Active Substance: PREGABALIN
     Indication: Epilepsy
     Route: 065
  4. LYRICA [Suspect]
     Active Substance: PREGABALIN
     Indication: Suicide attempt
  5. LYRICA [Suspect]
     Active Substance: PREGABALIN
     Indication: Anxiety disorder
  6. LYRICA [Suspect]
     Active Substance: PREGABALIN
     Indication: Neuralgia
  7. MORPHINE [Suspect]
     Active Substance: MORPHINE
     Indication: Suicide attempt
     Route: 065
  8. ALCOHOL [Concomitant]
     Active Substance: ALCOHOL
     Indication: Product used for unknown indication
     Route: 065
  9. LYRICA [Concomitant]
     Active Substance: PREGABALIN
     Indication: Neuralgia
     Route: 065
  10. LYRICA [Concomitant]
     Active Substance: PREGABALIN
     Indication: Anxiety disorder

REACTIONS (4)
  - Death [Fatal]
  - Overdose [Fatal]
  - Toxicity to various agents [Fatal]
  - Completed suicide [Fatal]
